FAERS Safety Report 9361818 (Version 1)
Quarter: 2013Q2

REPORT INFORMATION
  Report Type: Spontaneous
  Country: FR (occurrence: FR)
  Receive Date: 20130621
  Receipt Date: 20130621
  Transmission Date: 20140414
  Serious: Yes (Hospitalization)
  Sender: FDA-Public Use
  Company Number: FR-ASTRAZENECA-2013SE46386

PATIENT
  Age: 648 Month
  Sex: Male

DRUGS (9)
  1. INEXIUM [Suspect]
     Route: 048
  2. TEGRETOL [Suspect]
     Indication: EPILEPSY
     Route: 048
     Dates: start: 20130201, end: 20130404
  3. COAPROVEL [Suspect]
     Indication: HYPERTENSION
     Dosage: 300/12.5 MG/D
     Route: 048
     Dates: start: 201211
  4. TRILEPTAL [Suspect]
     Route: 065
  5. AMLODIPINE [Concomitant]
     Route: 048
  6. DIFFU K [Concomitant]
     Route: 048
  7. KEPPRA [Concomitant]
     Route: 048
  8. GARDENAL [Concomitant]
     Route: 048
  9. GARDENAL [Concomitant]
     Route: 048

REACTIONS (2)
  - Grand mal convulsion [Unknown]
  - Hyponatraemia [Recovered/Resolved]
